FAERS Safety Report 16162403 (Version 1)
Quarter: 2019Q2

REPORT INFORMATION
  Report Type: Spontaneous
  Country: US (occurrence: US)
  Receive Date: 20190301
  Receipt Date: 20190301
  Transmission Date: 20190711
  Serious: No
  Sender: FDA-Public Use
  Company Number: None

PATIENT
  Age: 78 Year
  Sex: Female

DRUGS (1)
  1. REPATHA [Suspect]
     Active Substance: EVOLOCUMAB
     Dosage: OTHER
     Route: 058
     Dates: start: 20180316

REACTIONS (5)
  - Device malfunction [None]
  - Injection site bruising [None]
  - Injection site swelling [None]
  - Oropharyngeal pain [None]
  - Injection site erythema [None]

NARRATIVE: CASE EVENT DATE: 20190301
